FAERS Safety Report 4602251-X (Version None)
Quarter: 2005Q1

REPORT INFORMATION
  Report Type: 
  Country: None (occurrence: None)
  Receive Date: 20050201
  Receipt Date: 20041018
  Transmission Date: 20050727
  Serious: Yes (Other)
  Sender: FDA-Public Use
  Company Number: 200420869BWH

PATIENT
  Age: 30 Year
  Sex: Female
  Weight: 71.6683 kg

DRUGS (2)
  1. AVELOX [Suspect]
     Indication: SINUSITIS
     Dosage: 400 MG, QD, ORAL
     Route: 048
     Dates: start: 20041011, end: 20041014
  2. SYNTHROID [Concomitant]

REACTIONS (8)
  - ANXIETY [None]
  - DEPRESSED MOOD [None]
  - DIZZINESS [None]
  - HALLUCINATION [None]
  - INAPPROPRIATE AFFECT [None]
  - MENTAL DISORDER [None]
  - PAIN [None]
  - PSYCHOTIC DISORDER [None]
